FAERS Safety Report 7900830-5 (Version None)
Quarter: 2011Q4

REPORT INFORMATION
  Report Type: 
  Country: None (occurrence: None)
  Receive Date: 20111108
  Receipt Date: 20111108
  Transmission Date: 20120403
  Serious: Yes (Other)
  Sender: FDA-Public Use
  Company Number: None

PATIENT
  Sex: Female
  Weight: 58.967 kg

DRUGS (1)
  1. VERAPAMIL EXTENDED-RELEASE [Suspect]
     Dosage: 180 MG
     Route: 048
     Dates: start: 20110710, end: 20111030

REACTIONS (2)
  - ASTHMA [None]
  - CONDITION AGGRAVATED [None]
